FAERS Safety Report 10990335 (Version 1)
Quarter: 2015Q1

REPORT INFORMATION
  Report Type: Spontaneous
  Country: None (occurrence: None)
  Receive Date: 20150226
  Receipt Date: 20150226
  Transmission Date: 20150721
  Serious: Yes (Hospitalization)
  Sender: FDA-Public Use
  Company Number: TPA2009A04040

PATIENT
  Age: 80 Year
  Sex: Female
  Weight: 81.65 kg

DRUGS (7)
  1. LIBRAX (CHLORDIAZEPOXIDE, CLIDINIUM BROMIDE) [Concomitant]
  2. PREVACID [Suspect]
     Active Substance: LANSOPRAZOLE
     Indication: GASTROOESOPHAGEAL REFLUX DISEASE
     Dosage: 30 MG, 2 IN 1 D, PER ORAL
     Route: 048
     Dates: start: 1999, end: 20091108
  3. VASOTEC (ENALAPRIL MALEATE) [Concomitant]
  4. HCTZ (HYDROCHLOROTHIAZIDE) [Concomitant]
     Active Substance: HYDROCHLOROTHIAZIDE
  5. ATENOLOL. [Concomitant]
     Active Substance: ATENOLOL
  6. PREVACID [Suspect]
     Active Substance: LANSOPRAZOLE
     Indication: HIATUS HERNIA
     Dosage: 30 MG, 2 IN 1 D, PER ORAL
     Route: 048
     Dates: start: 1999, end: 20091108
  7. DIABINESE (CHLORPROPAMIDE) [Concomitant]

REACTIONS (6)
  - Blood sodium decreased [None]
  - Chest pain [None]
  - Diarrhoea [None]
  - Headache [None]
  - Vomiting [None]
  - Tooth disorder [None]

NARRATIVE: CASE EVENT DATE: 20091104
